FAERS Safety Report 5558680-3 (Version None)
Quarter: 2007Q4

REPORT INFORMATION
  Report Type: 
  Country: None (occurrence: None)
  Receive Date: 20071214
  Receipt Date: 20071203
  Transmission Date: 20080405
  Serious: Yes (Other)
  Sender: FDA-Public Use
  Company Number: US-PFIZER INC-2007103017

PATIENT
  Sex: Female

DRUGS (2)
  1. CHANTIX [Suspect]
     Indication: SMOKING CESSATION THERAPY
     Route: 048
  2. LYRICA [Concomitant]
     Indication: HEADACHE

REACTIONS (5)
  - ABNORMAL DREAMS [None]
  - DEPRESSION [None]
  - SPEECH DISORDER [None]
  - TOOTH EXTRACTION [None]
  - WRONG TECHNIQUE IN DRUG USAGE PROCESS [None]
